FAERS Safety Report 12306022 (Version 3)
Quarter: 2016Q2

REPORT INFORMATION
  Report Type: Spontaneous
  Country: JP (occurrence: JP)
  Receive Date: 20160426
  Receipt Date: 20160630
  Transmission Date: 20160815
  Serious: Yes (Other)
  Sender: FDA-Public Use
  Company Number: JP-JNJFOC-20160421463

PATIENT

DRUGS (3)
  1. PEGINTERFERON ALFA-2A [Concomitant]
     Active Substance: PEGINTERFERON ALFA-2A
     Indication: CHRONIC HEPATITIS C
     Route: 058
  2. RIBAVIRIN. [Concomitant]
     Active Substance: RIBAVIRIN
     Indication: CHRONIC HEPATITIS C
     Route: 048
  3. SOVRIAD [Suspect]
     Active Substance: SIMEPREVIR
     Indication: CHRONIC HEPATITIS C
     Route: 048

REACTIONS (22)
  - Insomnia [Unknown]
  - Constipation [Unknown]
  - Platelet count decreased [Unknown]
  - Deafness [Unknown]
  - Blood bilirubin increased [Unknown]
  - Remission not achieved [Unknown]
  - Rash [Unknown]
  - Vomiting [Unknown]
  - Back pain [Unknown]
  - Haemoglobin decreased [Unknown]
  - Pruritus [Unknown]
  - Decreased appetite [Unknown]
  - Cough [Unknown]
  - Tinnitus [Unknown]
  - Alopecia [Unknown]
  - Dysuria [Unknown]
  - Photosensitivity reaction [Unknown]
  - Pyrexia [Unknown]
  - Headache [Unknown]
  - Neutrophil count decreased [Unknown]
  - Malaise [Unknown]
  - Blood uric acid increased [Unknown]
